FAERS Safety Report 6004294-0 (Version None)
Quarter: 2008Q4

REPORT INFORMATION
  Report Type: 
  Country: None (occurrence: None)
  Receive Date: 20081215
  Receipt Date: 20081215
  Transmission Date: 20090506
  Serious: Yes (Other)
  Sender: FDA-Public Use
  Company Number: None

PATIENT
  Age: 32 Year
  Sex: Female
  Weight: 63.5036 kg

DRUGS (1)
  1. CHLORHEXIDINE PREP [Suspect]
     Indication: PREOPERATIVE CARE
     Dosage: 1 ONCE TOP
     Route: 061

REACTIONS (1)
  - RASH PAPULAR [None]
